FAERS Safety Report 7089053-2 (Version None)
Quarter: 2010Q4

REPORT INFORMATION
  Report Type: 
  Country: None (occurrence: None)
  Receive Date: 20101108
  Receipt Date: 20101101
  Transmission Date: 20110411
  Serious: Yes (Hospitalization)
  Sender: FDA-Public Use
  Company Number: B0668799A

PATIENT
  Sex: Female

DRUGS (4)
  1. ARIXTRA [Suspect]
     Indication: THROMBOSIS PROPHYLAXIS
     Dosage: 15MG PER DAY
     Route: 058
     Dates: start: 20090703, end: 20090712
  2. LOXOPROFEN [Concomitant]
     Indication: PROCEDURAL PAIN
     Dosage: 180MG PER DAY
     Route: 048
     Dates: start: 20090702
  3. CYTOTEC [Concomitant]
     Dosage: 600MCG PER DAY
     Route: 048
     Dates: start: 20090702
  4. FLOMOX [Concomitant]
     Indication: INFECTION PROPHYLAXIS
     Dosage: 300MG PER DAY
     Route: 048
     Dates: start: 20090705, end: 20090711

REACTIONS (2)
  - IMPAIRED HEALING [None]
  - WOUND SECRETION [None]
